FAERS Safety Report 12804045 (Version 1)
Quarter: 2016Q4

REPORT INFORMATION
  Report Type: Spontaneous
  Country: US (occurrence: US)
  Receive Date: 20161003
  Receipt Date: 20161003
  Transmission Date: 20170207
  Serious: No
  Sender: FDA-Public Use
  Company Number: US-BAYER-2016-185340

PATIENT
  Age: 80 Year
  Sex: Male
  Weight: 103.4 kg

DRUGS (13)
  1. CENTRUM [Concomitant]
     Active Substance: VITAMINS
  2. CENTRUM [VIT C,BETACAROT,D3,B9,MIN NOS,RETINOL,VIT E,VIT B NOS] [Concomitant]
  3. MIRALAX [Suspect]
     Active Substance: POLYETHYLENE GLYCOL 3350
     Indication: GASTROINTESTINAL DISORDER
     Dosage: 1 DF, QD (FULL DOSE ONCE A DAY)
     Route: 048
     Dates: start: 2016, end: 2016
  4. AMLODIPINE [Concomitant]
     Active Substance: AMLODIPINE BESYLATE
  5. ALPRAZOLAM. [Concomitant]
     Active Substance: ALPRAZOLAM
  6. ASPIRIN. [Concomitant]
     Active Substance: ASPIRIN
  7. OMEPRAZOLE. [Concomitant]
     Active Substance: OMEPRAZOLE
  8. COLECALCIFEROL [Concomitant]
     Active Substance: CHOLECALCIFEROL
  9. MIRALAX [Suspect]
     Active Substance: POLYETHYLENE GLYCOL 3350
     Indication: GASTROINTESTINAL DISORDER
     Dosage: ONCE TEASPOON ONCE A DAY
     Route: 048
     Dates: start: 2016, end: 20160921
  10. LIPITOR [Concomitant]
     Active Substance: ATORVASTATIN CALCIUM
  11. PRILOSEC [Concomitant]
     Active Substance: OMEPRAZOLE MAGNESIUM
  12. LEVOTHYROXINE. [Concomitant]
     Active Substance: LEVOTHYROXINE
  13. LEVOSULPIRIDE [Concomitant]
     Active Substance: LEVOSULPIRIDE

REACTIONS (1)
  - Product use issue [None]
